FAERS Safety Report 5225563-8 (Version None)
Quarter: 2007Q1

REPORT INFORMATION
  Report Type: 
  Country: None (occurrence: None)
  Receive Date: 20070131
  Receipt Date: 20070122
  Transmission Date: 20070707
  Serious: Yes (Other)
  Sender: FDA-Public Use
  Company Number: PT-PFIZER INC-2007007087

PATIENT
  Sex: Male

DRUGS (7)
  1. LYRICA [Suspect]
     Route: 048
  2. LYRICA [Suspect]
     Route: 048
     Dates: start: 20070118, end: 20070118
  3. LYRICA [Suspect]
     Route: 048
     Dates: start: 20070103, end: 20070118
  4. HYDROCHLOROTHIAZIDE [Concomitant]
  5. IRBESARTAN [Concomitant]
     Route: 048
  6. SIMVASTATIN [Concomitant]
     Route: 048
  7. DILTIAZEM [Concomitant]
     Route: 048

REACTIONS (1)
  - HYPERTENSION [None]
